FAERS Safety Report 9743608 (Version 1)
Quarter: 2013Q4

REPORT INFORMATION
  Report Type: Spontaneous
  Country: US (occurrence: US)
  Receive Date: 20131210
  Receipt Date: 20131210
  Transmission Date: 20140711
  Serious: Yes (Other)
  Sender: FDA-Public Use
  Company Number: US-TEVA-382731USA

PATIENT
  Age: 34 Year
  Sex: Female
  Weight: 110.32 kg

DRUGS (1)
  1. PARAGARD 380A [Suspect]
     Indication: CONTRACEPTION
     Route: 015
     Dates: start: 20120815, end: 20121003

REACTIONS (4)
  - Device dislocation [Recovered/Resolved]
  - Muscle spasms [Unknown]
  - Pain [Unknown]
  - Amenorrhoea [Unknown]
